FAERS Safety Report 10521863 (Version 1)
Quarter: 2014Q4

REPORT INFORMATION
  Report Type: Spontaneous
  Country: US (occurrence: None)
  Receive Date: 20141014
  Receipt Date: 20141014
  Transmission Date: 20150528
  Serious: Yes (Hospitalization)
  Sender: FDA-Public Use
  Company Number: US-ALKEM-000736

PATIENT
  Age: 34 Year
  Sex: Male

DRUGS (20)
  1. INSULIN DETEMIR (INSULIN DETEMIR) [Concomitant]
     Active Substance: INSULIN DETEMIR
  2. HYDROMORPHONE (HYDROMORPHONE) [Concomitant]
     Active Substance: HYDROMORPHONE
  3. INSULIN LISPRO (INSULIN LISPRO) [Concomitant]
     Active Substance: INSULIN LISPRO
  4. ONDANSETRON. [Concomitant]
     Active Substance: ONDANSETRON
  5. PANTOPRAZOLE (PANTOPRAZOLE) [Concomitant]
     Active Substance: PANTOPRAZOLE SODIUM
  6. AMLODIPINE [Suspect]
     Active Substance: AMLODIPINE BESYLATE
     Indication: HYPERTENSION
     Dosage: 5.00000000-MG-1.0DA
     Route: 048
     Dates: start: 20140310, end: 20140322
  7. BUPROPION (BUPROPION) [Concomitant]
     Active Substance: BUPROPION
  8. ACYCLOVIR (ACYCLOVIR) [Concomitant]
     Active Substance: ACYCLOVIR
  9. CASPOFUNGIN (CASPOFUNGIN) [Concomitant]
  10. OXYCODONE (OXYCODONE) [Concomitant]
     Active Substance: OXYCODONE
  11. CARVEDILOL (CARVEDILOL) [Concomitant]
     Active Substance: CARVEDILOL
  12. METFORMIN [Concomitant]
     Active Substance: METFORMIN HYDROCHLORIDE
  13. LORAZEPAM (LORAZEPAM) [Concomitant]
     Active Substance: LORAZEPAM
  14. PROMETHAZINE [Concomitant]
     Active Substance: PROMETHAZINE\PROMETHAZINE HYDROCHLORIDE
  15. METHYLPREDNISOLONE (METHYLPREDNISOLONE) [Concomitant]
     Active Substance: METHYLPREDNISOLONE
  16. LEVOFLOXACIN (LEVOFLOXACIN) [Concomitant]
     Active Substance: LEVOFLOXACIN
  17. PREGABALIN (PREGABALIN) [Concomitant]
     Active Substance: PREGABALIN
  18. BUDESONIDE (BUDESONIDE) [Concomitant]
     Active Substance: BUDESONIDE
  19. TACROLIMUS (TACROLIMUS) [Concomitant]
     Active Substance: TACROLIMUS
  20. DAPSONE (DAPSONE) [Concomitant]

REACTIONS (3)
  - Alanine aminotransferase increased [None]
  - Drug-induced liver injury [None]
  - Aspartate aminotransferase increased [None]
